FAERS Safety Report 7393754-6 (Version None)
Quarter: 2011Q2

REPORT INFORMATION
  Report Type: 
  Country: None (occurrence: None)
  Receive Date: 20110405
  Receipt Date: 20110328
  Transmission Date: 20111010
  Serious: Yes (Hospitalization)
  Sender: FDA-Public Use
  Company Number: US-ASTELLAS-2011US000023

PATIENT

DRUGS (4)
  1. EXCEDRIN (MIGRAINE) [Concomitant]
     Indication: HEADACHE
     Dosage: 500 MG, PRN
     Route: 048
     Dates: start: 20101120, end: 20101125
  2. VITAMIN K TAB [Concomitant]
     Indication: PLATELET COUNT DECREASED
     Dosage: 5 MG, UNKNOWN/D
     Route: 030
     Dates: start: 20101125, end: 20101125
  3. AMEVIVE [Suspect]
     Dosage: 15 MG, WEEKLY
     Route: 030
     Dates: start: 20100602, end: 20100820
  4. AMEVIVE [Suspect]
     Indication: PSORIASIS
     Dosage: 15 MG, WEEKLY
     Route: 030
     Dates: start: 20051021

REACTIONS (1)
  - HEPATITIS A [None]
